FAERS Safety Report 6741348-5 (Version None)
Quarter: 2010Q2

REPORT INFORMATION
  Report Type: 
  Country: None (occurrence: None)
  Receive Date: 20100526
  Receipt Date: 20100518
  Transmission Date: 20101027
  Serious: Yes (Other)
  Sender: FDA-Public Use
  Company Number: US-SANOFI-AVENTIS-2010SA028673

PATIENT
  Age: 56 Year
  Sex: Male

DRUGS (3)
  1. FLUOROURACIL [Suspect]
     Indication: BOWEN'S DISEASE
  2. IMIQUIMOD [Suspect]
     Indication: SQUAMOUS CELL CARCINOMA
     Route: 061
  3. TAZAROTENE [Suspect]
     Indication: SQUAMOUS CELL CARCINOMA
     Route: 061

REACTIONS (7)
  - ERYTHEMA [None]
  - HYPERKERATOSIS [None]
  - INFECTED SKIN ULCER [None]
  - PAIN [None]
  - SKIN EROSION [None]
  - SKIN FISSURES [None]
  - SKIN ULCER [None]
